FAERS Safety Report 5066069-9 (Version None)
Quarter: 2006Q3

REPORT INFORMATION
  Report Type: 
  Country: None (occurrence: None)
  Receive Date: 20060731
  Receipt Date: 20060721
  Transmission Date: 20061208
  Serious: Yes (Disabling)
  Sender: FDA-Public Use
  Company Number: US-MERCK-0607USA04347

PATIENT
  Age: 73 Year
  Sex: Female

DRUGS (2)
  1. SIMVASTATIN [Suspect]
     Indication: BLOOD CHOLESTEROL INCREASED
     Route: 048
     Dates: start: 20060701, end: 20060715
  2. LEVOTHROID [Concomitant]
     Route: 065

REACTIONS (5)
  - CHEST PAIN [None]
  - DYSPEPSIA [None]
  - FATIGUE [None]
  - HEADACHE [None]
  - WRONG TECHNIQUE IN DRUG USAGE PROCESS [None]
